FAERS Safety Report 6616466-2 (Version None)
Quarter: 2010Q1

REPORT INFORMATION
  Report Type: 
  Country: None (occurrence: None)
  Receive Date: 20100305
  Receipt Date: 20100225
  Transmission Date: 20100710
  Serious: No
  Sender: FDA-Public Use
  Company Number: US-B.I. PHARMACEUTICALS,INC./RIDGEFIELD-2010-BP-00241BP

PATIENT
  Sex: Female

DRUGS (23)
  1. COMBIVENT [Suspect]
     Indication: CHRONIC OBSTRUCTIVE PULMONARY DISEASE
     Dosage: 8 PUF
     Route: 055
  2. SPIRIVA [Suspect]
     Indication: CHRONIC OBSTRUCTIVE PULMONARY DISEASE
     Dosage: 18 MCG
     Route: 055
  3. AMLODIPINE BESYLATE [Concomitant]
     Dosage: 10 MG
  4. DIOVAN [Concomitant]
     Dosage: 160 MG
  5. LEVOXYL [Concomitant]
  6. LEVOXYL [Concomitant]
  7. LEVOXYL [Concomitant]
  8. LEVOXYL [Concomitant]
  9. THEOPHYLLINE-SR [Concomitant]
     Indication: CHRONIC OBSTRUCTIVE PULMONARY DISEASE
  10. FEXOFENADINE [Concomitant]
     Indication: CHRONIC OBSTRUCTIVE PULMONARY DISEASE
  11. ADVAIR DISKUS 100/50 [Concomitant]
     Indication: CHRONIC OBSTRUCTIVE PULMONARY DISEASE
     Dosage: 2 PUF
  12. XOLPENEX [Concomitant]
  13. XOLPENEX [Concomitant]
  14. CONCENTRATOR [Concomitant]
  15. OXYGEN [Concomitant]
  16. LEXAPRO [Concomitant]
     Indication: ANXIETY
  17. CLONAZEPAM [Concomitant]
     Indication: ANXIETY
  18. MUCINEX [Concomitant]
  19. NYSTATIN [Concomitant]
  20. NASAL SPRAY-SALINE [Concomitant]
  21. LIQUID TEARS [Concomitant]
  22. MULTIVITAMINS/SENIOR [Concomitant]
  23. PREDNISONE [Concomitant]

REACTIONS (2)
  - DRUG EFFECT DECREASED [None]
  - GLAUCOMA [None]
